FAERS Safety Report 9527555 (Version 1)
Quarter: 2013Q3

REPORT INFORMATION
  Report Type: Spontaneous
  Country: US (occurrence: None)
  Receive Date: 20130913
  Receipt Date: 20130913
  Transmission Date: 20140515
  Serious: No
  Sender: FDA-Public Use
  Company Number: None

PATIENT
  Age: 11 Year
  Sex: Female
  Weight: 40.37 kg

DRUGS (1)
  1. DOXYCYCLINE [Suspect]
     Indication: LYME DISEASE
     Dosage: 1 PILL  TWICE DAILY  TAKEN BY MOUTH
     Route: 048
     Dates: start: 20130729, end: 20130814

REACTIONS (3)
  - Burning sensation [None]
  - Erythema [None]
  - Blister [None]
